FAERS Safety Report 9721992 (Version 1)
Quarter: 2013Q4

REPORT INFORMATION
  Report Type: Spontaneous
  Country: US (occurrence: US)
  Receive Date: 20131202
  Receipt Date: 20131202
  Transmission Date: 20140711
  Serious: No
  Sender: FDA-Public Use
  Company Number: US-009507513-1311USA011702

PATIENT
  Age: 68 Year
  Sex: Male

DRUGS (5)
  1. VICTRELIS [Suspect]
     Indication: HEPATITIS C
     Dosage: 800 MG/ 3 TIMES A DAY
     Route: 048
     Dates: start: 20131106
  2. REBETOL [Suspect]
     Dosage: UNK
     Route: 048
  3. PEGASYS [Suspect]
  4. VERAPAMIL [Concomitant]
  5. TAMSULOSIN HYDROCHLORIDE [Concomitant]

REACTIONS (4)
  - Cataract [Unknown]
  - Rash pustular [Unknown]
  - Pollakiuria [Unknown]
  - Rash [Unknown]
